FAERS Safety Report 5827988-6 (Version None)
Quarter: 2008Q3

REPORT INFORMATION
  Report Type: 
  Country: None (occurrence: None)
  Receive Date: 20080728
  Receipt Date: 20080715
  Transmission Date: 20090109
  Serious: Yes (Other)
  Sender: FDA-Public Use
  Company Number: 2008AP001750

PATIENT
  Age: 73 Year
  Sex: Male
  Weight: 99.7913 kg

DRUGS (13)
  1. AMLODIPINE BESYLATE [Suspect]
     Indication: HYPERTENSION
     Dosage: 10 MG;QD;PO
     Route: 048
     Dates: start: 20071106
  2. AMLODIPINE BESYLATE [Concomitant]
  3. ATENOLOL [Concomitant]
  4. ATORVASTATIN [Concomitant]
  5. ESOMEPRAZOLE [Concomitant]
  6. METFORMIN HCL [Concomitant]
  7. MELOXICAM [Concomitant]
  8. BIMATOPROST [Concomitant]
  9. TIOTROPIUM BROMIDE [Concomitant]
  10. BUDESONIDE [Concomitant]
  11. FORMOTEROL FUMARATE [Concomitant]
  12. FEXOFENADINE [Concomitant]
  13. PSEUDOEPHEDRINE HCL [Concomitant]

REACTIONS (15)
  - ABASIA [None]
  - CONDITION AGGRAVATED [None]
  - DIZZINESS [None]
  - DRUG HYPERSENSITIVITY [None]
  - DRUG INEFFECTIVE [None]
  - DYSPNOEA [None]
  - FLUID RETENTION [None]
  - HEADACHE [None]
  - HYPERTENSION [None]
  - JOINT SWELLING [None]
  - LETHARGY [None]
  - MUSCULAR WEAKNESS [None]
  - PHARMACEUTICAL PRODUCT COMPLAINT [None]
  - PRESYNCOPE [None]
  - REACTION TO DRUG EXCIPIENTS [None]
